FAERS Safety Report 7741272-5 (Version None)
Quarter: 2011Q3

REPORT INFORMATION
  Report Type: 
  Country: None (occurrence: None)
  Receive Date: 20110909
  Receipt Date: 20110902
  Transmission Date: 20111222
  Serious: Yes (Hospitalization)
  Sender: FDA-Public Use
  Company Number: US-US-EMD SERONO, INC.-232452J10USA

PATIENT
  Sex: Female

DRUGS (10)
  1. MYSOLINE [Concomitant]
  2. PERCOCET [Concomitant]
     Indication: PAIN
  3. SEROQUEL [Concomitant]
     Indication: INSOMNIA
     Dates: start: 20090101
  4. REBIF [Suspect]
     Indication: MULTIPLE SCLEROSIS
     Route: 058
     Dates: start: 20081218
  5. PAMELOR [Concomitant]
     Indication: DEPRESSION
     Dates: start: 20090101
  6. METHADONE HCL [Concomitant]
     Indication: PAIN
  7. ZOLOFT [Concomitant]
     Indication: DEPRESSION
     Dates: start: 20090101
  8. POTASSIUM [Concomitant]
     Indication: BLOOD POTASSIUM DECREASED
  9. NEURONTIN [Concomitant]
  10. PRILOSEC [Concomitant]
     Indication: ABDOMINAL DISCOMFORT

REACTIONS (3)
  - CONVULSION [None]
  - MULTIPLE SCLEROSIS [None]
  - DRUG INTERACTION [None]
